FAERS Safety Report 23149322 (Version 1)
Quarter: 2023Q4

REPORT INFORMATION
  Report Type: Spontaneous
  Country: IN (occurrence: IN)
  Receive Date: 20231106
  Receipt Date: 20231106
  Transmission Date: 20240109
  Serious: Yes (Life-Threatening, Hospitalization)
  Sender: FDA-Public Use
  Company Number: IN-MYLANLABS-2023M1117295

PATIENT
  Age: 30 Year
  Sex: Male

DRUGS (15)
  1. PHENYTOIN [Suspect]
     Active Substance: PHENYTOIN
     Indication: Seizure prophylaxis
     Dosage: 300 MILLIGRAM, QD
     Route: 065
  2. PHENYTOIN [Suspect]
     Active Substance: PHENYTOIN
     Indication: Status epilepticus
     Dosage: UNK, LOADING DOSE OF PHENYTOIN 1G AT 40 MG/MIN
     Route: 065
  3. PROPOFOL [Suspect]
     Active Substance: PROPOFOL
     Indication: Status epilepticus
     Dosage: 2 MILLIGRAM/KILOGRAM, INTRAVENOUS INFUSION
     Route: 042
  4. PROPOFOL [Suspect]
     Active Substance: PROPOFOL
     Indication: General anaesthesia
     Dosage: UNK, PROPOFOL INFUSION AT 6-9 MG/KG/H, INTRAVENOUS INFUSION
     Route: 042
  5. PROPOFOL [Suspect]
     Active Substance: PROPOFOL
     Dosage: UNK, TAPERED INFUSION
     Route: 042
  6. PROPOFOL [Suspect]
     Active Substance: PROPOFOL
     Dosage: 100 MILLIGRAM, PROPOFOL BOLUS OF 100MG, INTRAVENOUS BOLUS
     Route: 042
  7. PROPOFOL [Suspect]
     Active Substance: PROPOFOL
     Dosage: 7 MILLIGRAM/KILOGRAM, QMINUTE
     Route: 042
  8. PROPOFOL [Suspect]
     Active Substance: PROPOFOL
     Dosage: UNK, TAPERED
     Route: 042
  9. LORAZEPAM [Suspect]
     Active Substance: LORAZEPAM
     Indication: Status epilepticus
     Dosage: 5 MILLIGRAM
     Route: 042
  10. LEVETIRACETAM [Suspect]
     Active Substance: LEVETIRACETAM
     Indication: Status epilepticus
     Dosage: 3 GRAM, LOADING DOSE OF LEVETIRACETAM 3G ADMINISTERED OVER 15MIN
     Route: 065
  11. THIOPENTAL SODIUM [Suspect]
     Active Substance: THIOPENTAL SODIUM
     Indication: Status epilepticus
     Dosage: 200 MILLIGRAM, BOLUS OF 200MG
     Route: 065
  12. THIOPENTAL SODIUM [Suspect]
     Active Substance: THIOPENTAL SODIUM
     Dosage: 30 MILLIGRAM, QMINUTE, THIOPENTAL-SODIUM INFUSION 30 MG/MIN
     Route: 065
  13. FENTANYL [Concomitant]
     Active Substance: FENTANYL\FENTANYL CITRATE
     Indication: General anaesthesia
     Dosage: 100 MICROGRAM
     Route: 042
  14. VECURONIUM [Concomitant]
     Active Substance: VECURONIUM BROMIDE
     Indication: Mechanical ventilation
     Dosage: 6 MILLIGRAM
     Route: 065
  15. PHENYLEPHRINE [Concomitant]
     Active Substance: PHENYLEPHRINE HYDROCHLORIDE
     Indication: Hypotension
     Dosage: 100 MICROGRAM
     Route: 065

REACTIONS (1)
  - Drug ineffective [Unknown]
